FAERS Safety Report 7455014-4 (Version None)
Quarter: 2011Q2

REPORT INFORMATION
  Report Type: 
  Country: None (occurrence: None)
  Receive Date: 20110503
  Receipt Date: 20110426
  Transmission Date: 20111010
  Serious: Yes (Hospitalization, Disabling)
  Sender: FDA-Public Use
  Company Number: JP-PFIZER INC-2011093616

PATIENT
  Age: 67 Year
  Sex: Male
  Weight: 61.6 kg

DRUGS (1)
  1. ANCARON [Suspect]
     Indication: VENTRICULAR TACHYCARDIA
     Dosage: 200 MG, DAILY
     Route: 048
     Dates: start: 20000101

REACTIONS (3)
  - OESOPHAGEAL CARCINOMA [None]
  - HYPOTHYROIDISM [None]
  - HEPATIC FUNCTION ABNORMAL [None]
